FAERS Safety Report 6011139-1 (Version None)
Quarter: 2008Q4

REPORT INFORMATION
  Report Type: 
  Country: None (occurrence: None)
  Receive Date: 20081217
  Receipt Date: 20081217
  Transmission Date: 20090506
  Serious: No
  Sender: FDA-Public Use
  Company Number: None

PATIENT
  Sex: Male
  Weight: 51.59 kg

DRUGS (10)
  1. BUPROPION HYDROCHLORIDE [Suspect]
     Dosage: 75MG TABLET 75 MG QD ORAL
     Route: 048
     Dates: start: 20081204, end: 20081216
  2. CELEXA [Concomitant]
  3. CENTRUM SILVER [Concomitant]
  4. METOPROLOL SUCCINATE EXTENDED RELEASE [Concomitant]
  5. OXYCODONE [Concomitant]
  6. PANTOPRAZOLE [Concomitant]
  7. PROCHLORPERAZINE [Concomitant]
  8. SIMVASTATIN [Concomitant]
  9. SYNTHROID [Concomitant]
  10. WARFARIN SODIUM [Concomitant]

REACTIONS (1)
  - ANOREXIA [None]
